FAERS Safety Report 9512280 (Version 1)
Quarter: 2013Q3

REPORT INFORMATION
  Report Type: Spontaneous
  Country: US (occurrence: US)
  Receive Date: 20130910
  Receipt Date: 20130910
  Transmission Date: 20140515
  Serious: No
  Sender: FDA-Public Use
  Company Number: -SAAVPROD-BMS13638697

PATIENT
  Age: 61 Year
  Sex: Female
  Weight: 89.79 kg

DRUGS (8)
  1. AVAPRO [Suspect]
     Indication: RENAL IMPAIRMENT
     Route: 048
  2. BYETTA [Suspect]
     Indication: TYPE 2 DIABETES MELLITUS
     Dosage: 5MCG 03-NOV-2006 - 14-DEC-2006
     Route: 058
     Dates: start: 20061103, end: 20061214
  3. BYETTA [Suspect]
     Indication: TYPE 2 DIABETES MELLITUS
     Route: 058
     Dates: start: 20061215
  4. GLUCOPHAGE [Concomitant]
     Dates: end: 200611
  5. VITAMIN B12 [Concomitant]
  6. SIMVASTATIN [Concomitant]
     Dates: start: 200609
  7. IRON [Concomitant]
  8. AVANDIA [Concomitant]
     Dates: end: 20061031

REACTIONS (4)
  - Blood glucose increased [Unknown]
  - Nasopharyngitis [Recovered/Resolved]
  - Weight decreased [Unknown]
  - Drug ineffective [Unknown]
